FAERS Safety Report 8790357 (Version 1)
Quarter: 2012Q4

REPORT INFORMATION
  Report Type: 
  Country: US (occurrence: US)
  Receive Date: 20120917
  Receipt Date: 20120917
  Transmission Date: 20130627
  Serious: No
  Sender: FDA-Public Use
  Company Number: US-009507513-1208USA007651

PATIENT

DRUGS (1)
  1. VICTRELIS [Suspect]
     Dosage: 800 mg, tid
     Route: 048
     Dates: start: 201206

REACTIONS (3)
  - Weight decreased [Unknown]
  - Anaemia [Unknown]
  - Decreased appetite [Unknown]
